FAERS Safety Report 13302724 (Version 1)
Quarter: 2017Q1

REPORT INFORMATION
  Report Type: Report from Study
  Country: US (occurrence: US)
  Receive Date: 20170307
  Receipt Date: 20170307
  Transmission Date: 20170428
  Serious: Yes (Other)
  Sender: FDA-Public Use
  Company Number: US-ARIAD-2014US004168

PATIENT
  Age: 49 Year
  Sex: Male
  Weight: 104 kg

DRUGS (9)
  1. ICLUSIG [Suspect]
     Active Substance: PONATINIB
     Dosage: 45 MG, QD
     Route: 048
  2. ASPIRE [Concomitant]
     Indication: PRODUCT USED FOR UNKNOWN INDICATION
     Dosage: 81 MG, QD
     Route: 048
     Dates: start: 20160804
  3. METFORMIN [Concomitant]
     Active Substance: METFORMIN HYDROCHLORIDE
     Indication: PRODUCT USED FOR UNKNOWN INDICATION
     Dosage: 1000 MG, BID
     Route: 048
     Dates: start: 20160517
  4. OMEPRAZOLE. [Concomitant]
     Active Substance: OMEPRAZOLE
     Indication: PRODUCT USED FOR UNKNOWN INDICATION
     Dosage: 40 MG, QD
     Route: 048
     Dates: start: 20161214
  5. KEFLEX [Concomitant]
     Active Substance: CEPHALEXIN
     Indication: PRODUCT USED FOR UNKNOWN INDICATION
     Dosage: 500 MG, Q12H
     Route: 048
     Dates: start: 20161214
  6. ATORVASTATIN [Concomitant]
     Active Substance: ATORVASTATIN
     Indication: PRODUCT USED FOR UNKNOWN INDICATION
     Dosage: 40 MG, QD
     Route: 048
     Dates: start: 20160809
  7. BRILINTA [Concomitant]
     Active Substance: TICAGRELOR
     Indication: PRODUCT USED FOR UNKNOWN INDICATION
     Dosage: 90 MG, BID
     Route: 048
     Dates: start: 20160804
  8. ICLUSIG [Suspect]
     Active Substance: PONATINIB
     Indication: CHRONIC MYELOID LEUKAEMIA
     Dosage: 45 MG, QD
     Route: 048
     Dates: start: 201304
  9. GLIPIZIDE. [Concomitant]
     Active Substance: GLIPIZIDE
     Indication: PRODUCT USED FOR UNKNOWN INDICATION
     Dosage: 10 MG, BID
     Route: 048
     Dates: start: 20160517

REACTIONS (28)
  - Toothache [Unknown]
  - Hypothyroidism [Not Recovered/Not Resolved]
  - Weight decreased [Unknown]
  - Acute myocardial infarction [Unknown]
  - Peritoneal abscess [Unknown]
  - Chemotherapy [Not Recovered/Not Resolved]
  - Basophil count increased [Not Recovered/Not Resolved]
  - Diabetic complication [Unknown]
  - Drug dose omission [Not Recovered/Not Resolved]
  - Lymphopenia [Unknown]
  - Stem cell transplant [Unknown]
  - Leukocytosis [Unknown]
  - Sinusitis [Unknown]
  - Amylase abnormal [Recovered/Resolved]
  - Type 2 diabetes mellitus [Unknown]
  - Granulocyte count increased [Not Recovered/Not Resolved]
  - Skin wound [Unknown]
  - Stent placement [Unknown]
  - Essential hypertension [Not Recovered/Not Resolved]
  - Lipase abnormal [Recovered/Resolved]
  - Hordeolum [Unknown]
  - Eye infection [Unknown]
  - Xerophthalmia [Unknown]
  - Type V hyperlipidaemia [Unknown]
  - White blood cell count increased [Not Recovered/Not Resolved]
  - Nocturia [Not Recovered/Not Resolved]
  - Extraocular muscle paresis [Unknown]
  - Drug ineffective [Unknown]

NARRATIVE: CASE EVENT DATE: 20130718
